FAERS Safety Report 19973980 (Version 1)
Quarter: 2021Q4

REPORT INFORMATION
  Report Type: Report from Study
  Country: IT (occurrence: IT)
  Receive Date: 20211020
  Receipt Date: 20211020
  Transmission Date: 20220304
  Serious: Yes (Hospitalization)
  Sender: FDA-Public Use
  Company Number: None

PATIENT
  Age: 81 Year
  Sex: Female

DRUGS (3)
  1. FLUCONAZOLE [Suspect]
     Active Substance: FLUCONAZOLE
     Indication: Antibiotic prophylaxis
     Route: 065
     Dates: start: 20210719, end: 20210805
  2. MEROPENEM [Suspect]
     Active Substance: MEROPENEM
     Indication: Product used for unknown indication
     Route: 065
     Dates: start: 20210720, end: 20210805
  3. TYGACIL [Suspect]
     Active Substance: TIGECYCLINE
     Indication: Antibiotic prophylaxis
     Route: 042
     Dates: start: 20210719, end: 20210805

REACTIONS (6)
  - Petechiae [Unknown]
  - Drug reaction with eosinophilia and systemic symptoms [Unknown]
  - Lymphocyte morphology abnormal [Unknown]
  - Eosinophilia [Unknown]
  - Erythema [Unknown]
  - Pruritus [Unknown]

NARRATIVE: CASE EVENT DATE: 20210813
